FAERS Safety Report 9641755 (Version 1)
Quarter: 2013Q4

REPORT INFORMATION
  Report Type: Spontaneous
  Country: US (occurrence: US)
  Receive Date: 20131023
  Receipt Date: 20131023
  Transmission Date: 20140711
  Serious: Yes (Hospitalization, Other)
  Sender: FDA-Public Use
  Company Number: US-BAYER-2013-128046

PATIENT
  Age: 48 Year
  Sex: Female
  Weight: 71.66 kg

DRUGS (9)
  1. YAZ [Suspect]
  2. YASMIN [Suspect]
  3. OCELLA [Suspect]
  4. LISINOPRIL [Concomitant]
     Dosage: 40 MG, DAILY
  5. B12 [Concomitant]
     Dosage: 250 MG, DAILY
     Dates: start: 20110906
  6. MORPHINE [Concomitant]
  7. IBUPROFEN [Concomitant]
     Dosage: UNK
     Dates: start: 20110905
  8. TORADOL [Concomitant]
  9. LORTAB [Concomitant]

REACTIONS (2)
  - Pulmonary embolism [None]
  - Cholelithiasis [None]
